FAERS Safety Report 7803550-0 (Version None)
Quarter: 2011Q4

REPORT INFORMATION
  Report Type: 
  Country: None (occurrence: None)
  Receive Date: 20111009
  Receipt Date: 20110928
  Transmission Date: 20120403
  Serious: No
  Sender: FDA-Public Use
  Company Number: US-B.I. PHARMACEUTICALS,INC./RIDGEFIELD-2011-BP-21029BP

PATIENT
  Age: 77 Year
  Sex: Male

DRUGS (7)
  1. PLAVIX [Concomitant]
     Route: 048
     Dates: start: 20100101
  2. PRADAXA [Suspect]
     Indication: ATRIAL FIBRILLATION
     Dosage: 300 MG
     Route: 048
     Dates: start: 20110401
  3. PRADAXA [Suspect]
     Dosage: 150 MG
     Dates: end: 20110901
  4. NORVASC [Concomitant]
     Indication: HYPERTENSION
     Route: 048
  5. HYDRALAZINE HCL [Concomitant]
     Indication: HYPERTENSION
     Route: 048
  6. POMEGRANATE SUPPLEMENT [Concomitant]
     Indication: PROSTATE CANCER
     Route: 048
  7. LABETALOL HCL [Concomitant]
     Indication: HYPERTENSION
     Route: 048

REACTIONS (3)
  - COUGH [None]
  - FATIGUE [None]
  - DYSPNOEA [None]
